FAERS Safety Report 21018081 (Version 2)
Quarter: 2025Q1

REPORT INFORMATION
  Report Type: Spontaneous
  Country: US (occurrence: US)
  Receive Date: 20220628
  Receipt Date: 20250219
  Transmission Date: 20250409
  Serious: Yes (Other)
  Sender: BAYER HEALTHCARE PHARMACEUTICALS INC.
  Company Number: US-BAYER-2022A089658

PATIENT
  Sex: Female

DRUGS (6)
  1. MIRENA [Suspect]
     Active Substance: LEVONORGESTREL
     Indication: Intrauterine contraception
     Dosage: 20?G/DAY
     Route: 015
     Dates: start: 201911
  2. MIRENA [Suspect]
     Active Substance: LEVONORGESTREL
     Indication: Infective pulmonary exacerbation of cystic fibrosis
  3. MIRENA [Suspect]
     Active Substance: LEVONORGESTREL
     Indication: Cystic fibrosis
  4. MIRENA [Suspect]
     Active Substance: LEVONORGESTREL
     Indication: Heavy menstrual bleeding
  5. CAYSTON [Suspect]
     Active Substance: AZTREONAM
  6. TRIKAFTA [Concomitant]
     Active Substance: ELEXACAFTOR\IVACAFTOR\TEZACAFTOR
     Dosage: 2 DF, BID
     Route: 048

REACTIONS (3)
  - Haemoptysis [None]
  - Headache [None]
  - Fatigue [None]
